FAERS Safety Report 21750869 (Version 3)
Quarter: 2023Q1

REPORT INFORMATION
  Report Type: Spontaneous
  Country: BR (occurrence: BR)
  Receive Date: 20221219
  Receipt Date: 20230112
  Transmission Date: 20230417
  Serious: Yes (Hospitalization, Other)
  Sender: FDA-Public Use
  Company Number: BR-JNJFOC-20221233847

PATIENT
  Sex: Male
  Weight: 60 kg

DRUGS (4)
  1. IMBRUVICA [Suspect]
     Active Substance: IBRUTINIB
     Indication: Chronic myeloid leukaemia
     Route: 048
     Dates: start: 202102
  2. PIROXICAM [Concomitant]
     Active Substance: PIROXICAM
     Indication: Hypertension
     Dosage: 1 TABLET/DAY
     Route: 048
  3. NOVALGIN (METAMIZOLE SODIUM) [Concomitant]
     Active Substance: METAMIZOLE SODIUM
     Indication: Headache
     Route: 048
  4. CLONAZEPAM [Concomitant]
     Active Substance: CLONAZEPAM
     Indication: Product used for unknown indication

REACTIONS (10)
  - Urinary retention [Not Recovered/Not Resolved]
  - Headache [Unknown]
  - Anxiety [Unknown]
  - Tremor [Unknown]
  - Off label use [Unknown]
  - Insomnia [Unknown]
  - Panic disorder [Unknown]
  - Abdominal pain [Unknown]
  - Depression [Unknown]
  - Hypertension [Unknown]
